FAERS Safety Report 9262830 (Version 2)
Quarter: 2013Q2

REPORT INFORMATION
  Report Type: Report from Study
  Country: US (occurrence: US)
  Receive Date: 20130430
  Receipt Date: 20130516
  Transmission Date: 20140414
  Serious: Yes (Death)
  Sender: FDA-Public Use
  Company Number: PHEH2013US009395

PATIENT
  Age: 57 Year
  Sex: Female

DRUGS (7)
  1. AFINITOR [Suspect]
     Indication: RENAL CANCER
     Dosage: 10 MG, DAILY
     Route: 048
     Dates: start: 20130201
  2. VOTRIENT [Suspect]
     Indication: RENAL CANCER
     Dosage: 800 MG, DAILY
     Route: 048
     Dates: start: 20121202
  3. HYDROCODONE/APAP [Concomitant]
  4. PROPRANOLOL HCL [Concomitant]
     Dosage: UNK
  5. PAXIL [Concomitant]
     Dosage: 30 MG, UNK
  6. MULTIPLE VITAMINS [Concomitant]
  7. TYLENOL [Concomitant]
     Dosage: 650 MG, Q8H

REACTIONS (1)
  - Death [Fatal]
